FAERS Safety Report 12633158 (Version 2)
Quarter: 2016Q3

REPORT INFORMATION
  Report Type: Spontaneous
  Country: US (occurrence: US)
  Receive Date: 20160808
  Receipt Date: 20160808
  Transmission Date: 20161109
  Serious: No
  Sender: FDA-Public Use
  Company Number: US-BEH-2016058659

PATIENT
  Sex: Female
  Weight: 94 kg

DRUGS (40)
  1. VITAMIN D3 [Concomitant]
     Active Substance: CHOLECALCIFEROL
  2. ZINC [Concomitant]
     Active Substance: ZINC\ZINC CHLORIDE
  3. GUAIATUSSIN AC [Concomitant]
     Active Substance: CODEINE PHOSPHATE\GUAIFENESIN
  4. TEA [Concomitant]
     Active Substance: TEA LEAF
  5. LUTEIN [Concomitant]
     Active Substance: LUTEIN
  6. LIDOCAINE/PRILOCAINE [Concomitant]
     Active Substance: LIDOCAINE\PRILOCAINE
  7. ACIDOPHILUS [Concomitant]
     Active Substance: LACTOBACILLUS ACIDOPHILUS
  8. MEPERIDINE [Concomitant]
     Active Substance: MEPERIDINE
  9. FOLIC ACID. [Concomitant]
     Active Substance: FOLIC ACID
  10. ASPIRIN. [Concomitant]
     Active Substance: ASPIRIN
  11. MICONAZOLE. [Concomitant]
     Active Substance: MICONAZOLE
  12. BETA CAROTENE [Concomitant]
  13. DIAZEPAM. [Concomitant]
     Active Substance: DIAZEPAM
  14. GINGER. [Concomitant]
     Active Substance: GINGER
  15. TORSEMIDE. [Concomitant]
     Active Substance: TORSEMIDE
  16. COLACE [Concomitant]
     Active Substance: DOCUSATE SODIUM
  17. MAG-OXIDE [Concomitant]
  18. COZAAR [Concomitant]
     Active Substance: LOSARTAN POTASSIUM
  19. EPIPEN [Concomitant]
     Active Substance: EPINEPHRINE
  20. CINNAMON. [Concomitant]
     Active Substance: CINNAMON
  21. VITAMIN B [Concomitant]
     Active Substance: VITAMIN B
  22. VITAMIN E [Concomitant]
     Active Substance: .ALPHA.-TOCOPHEROL
  23. HIZENTRA [Suspect]
     Active Substance: HUMAN IMMUNOGLOBULIN G
     Indication: IMMUNODEFICIENCY COMMON VARIABLE
     Route: 058
  24. VITAMIN C [Concomitant]
     Active Substance: ASCORBIC ACID
  25. DIPHENHYDRAMINE. [Concomitant]
     Active Substance: DIPHENHYDRAMINE
  26. DIMETAPP COLD+CONGESTION [Concomitant]
  27. BIOTIN [Concomitant]
     Active Substance: BIOTIN
  28. KLONOPIN [Concomitant]
     Active Substance: CLONAZEPAM
  29. METAMUCIL [Concomitant]
     Active Substance: PLANTAGO SEED
  30. ESTRACE [Concomitant]
     Active Substance: ESTRADIOL
  31. PROVENTIL [Concomitant]
     Active Substance: ALBUTEROL
  32. CALCIUM+D [Concomitant]
     Active Substance: CALCIUM\VITAMIN D
  33. DEXAMETHASONE. [Concomitant]
     Active Substance: DEXAMETHASONE
  34. DEMADEX [Concomitant]
     Active Substance: TORSEMIDE
  35. NIACIN. [Concomitant]
     Active Substance: NIACIN
  36. ACETAMINOPHEN. [Concomitant]
     Active Substance: ACETAMINOPHEN
  37. DIFLUCAN [Concomitant]
     Active Substance: FLUCONAZOLE
  38. SYNTHROID [Concomitant]
     Active Substance: LEVOTHYROXINE SODIUM
  39. DOXEPIN [Concomitant]
     Active Substance: DOXEPIN
  40. PROMETHAZINE W/DM [Concomitant]

REACTIONS (6)
  - Dyspepsia [Unknown]
  - Chest discomfort [Unknown]
  - Wheezing [Unknown]
  - Flushing [Unknown]
  - Headache [Unknown]
  - Rash [Unknown]
